FAERS Safety Report 18596888 (Version 1)
Quarter: 2020Q4

REPORT INFORMATION
  Report Type: Spontaneous
  Country: ET (occurrence: ET)
  Receive Date: 20201209
  Receipt Date: 20201209
  Transmission Date: 20210114
  Serious: Yes (Life-Threatening, Other)
  Sender: FDA-Public Use
  Company Number: ET-FRESENIUS KABI-FK202013041

PATIENT
  Age: 35 Year
  Sex: Female

DRUGS (4)
  1. METOCLOPRAMIDE. [Concomitant]
     Active Substance: METOCLOPRAMIDE
     Indication: PREMEDICATION
     Route: 042
  2. SODIUM CHLORIDE. [Concomitant]
     Active Substance: SODIUM CHLORIDE
     Indication: PREMEDICATION
     Route: 065
  3. CIMETIDINE [Concomitant]
     Active Substance: CIMETIDINE
     Indication: PREMEDICATION
     Route: 065
  4. BUPIVACAINE (MANUFACTURER UNKNOWN) [Suspect]
     Active Substance: BUPIVACAINE
     Indication: SPINAL ANAESTHESIA
     Route: 050

REACTIONS (6)
  - Dyskinesia [Recovered/Resolved]
  - Anaesthetic complication [Recovered/Resolved]
  - Hypoglycaemia [Recovered/Resolved]
  - Anxiety [Recovered/Resolved]
  - Pulmonary oedema [Recovered/Resolved]
  - Exposure during pregnancy [Recovered/Resolved]
